FAERS Safety Report 4736293-0 (Version None)
Quarter: 2005Q3

REPORT INFORMATION
  Report Type: 
  Country: None (occurrence: None)
  Receive Date: 20050802
  Receipt Date: 20050720
  Transmission Date: 20060218
  Serious: Yes (Other)
  Sender: FDA-Public Use
  Company Number: 2005104933

PATIENT
  Age: 75 Year
  Sex: Male
  Weight: 81.6475 kg

DRUGS (3)
  1. VIAGRA [Suspect]
     Indication: ERECTILE DYSFUNCTION
     Dosage: 50 MG (50 MG), ORAL
     Route: 048
     Dates: start: 20040101
  2. ALL OTHER THERAPEUTIC PRODUCTS [Concomitant]
  3. BUSPAR [Concomitant]

REACTIONS (4)
  - DRUG EFFECT DECREASED [None]
  - LUNG DISORDER [None]
  - NEOPLASM MALIGNANT [None]
  - PAIN [None]
